FAERS Safety Report 9410969 (Version 1)
Quarter: 2013Q3

REPORT INFORMATION
  Report Type: Spontaneous
  Country: US (occurrence: US)
  Receive Date: 20130719
  Receipt Date: 20130719
  Transmission Date: 20140515
  Serious: No
  Sender: FDA-Public Use
  Company Number: US-009507513-1307USA008010

PATIENT
  Sex: Female

DRUGS (1)
  1. LOVASTATIN [Suspect]
     Indication: BLOOD CHOLESTEROL
     Dosage: UNK
     Route: 048

REACTIONS (5)
  - Fall [Unknown]
  - Pain in extremity [Unknown]
  - Drug intolerance [Unknown]
  - Muscular weakness [Unknown]
  - Muscle spasms [Unknown]
